FAERS Safety Report 13966476 (Version 1)
Quarter: 2017Q3

REPORT INFORMATION
  Report Type: Spontaneous
  Country: US (occurrence: US)
  Receive Date: 20170913
  Receipt Date: 20170913
  Transmission Date: 20171128
  Serious: Yes (Other)
  Sender: FDA-Public Use
  Company Number: US-BRISTOL-MYERS SQUIBB COMPANY-BMS-2017-080350

PATIENT

DRUGS (1)
  1. YERVOY [Suspect]
     Active Substance: IPILIMUMAB
     Indication: MALIGNANT MELANOMA
     Dosage: 10 MG/KG, 1,050 MG
     Route: 042
     Dates: start: 20170425, end: 20170627

REACTIONS (5)
  - Malignant neoplasm progression [Unknown]
  - Toxicity to various agents [Unknown]
  - Colitis [Unknown]
  - Prescribed overdose [Unknown]
  - Thyroiditis [Unknown]
